FAERS Safety Report 5890370-X (Version None)
Quarter: 2008Q3

REPORT INFORMATION
  Report Type: 
  Country: None (occurrence: None)
  Receive Date: 20080918
  Receipt Date: 20080908
  Transmission Date: 20090109
  Serious: Yes (Other)
  Sender: FDA-Public Use
  Company Number: 2008BI010354

PATIENT
  Sex: Male

DRUGS (1)
  1. AVONEX [Suspect]
     Indication: MULTIPLE SCLEROSIS
     Dosage: QW;IM
     Route: 030
     Dates: start: 19970701, end: 20040101

REACTIONS (4)
  - PNEUMONIA ASPIRATION [None]
  - PROGRESSIVE MULTIPLE SCLEROSIS [None]
  - RENAL CELL CARCINOMA [None]
  - RENAL FAILURE [None]
